FAERS Safety Report 7077880-7 (Version None)
Quarter: 2010Q4

REPORT INFORMATION
  Report Type: 
  Country: None (occurrence: None)
  Receive Date: 20101101
  Receipt Date: 20101020
  Transmission Date: 20110411
  Serious: Yes (Death)
  Sender: FDA-Public Use
  Company Number: US-CELGENEUS-163-21880-10102076

PATIENT
  Sex: Female

DRUGS (4)
  1. REVLIMID [Suspect]
     Indication: MULTIPLE MYELOMA
     Route: 048
     Dates: start: 20080401, end: 20081001
  2. REVLIMID [Suspect]
     Route: 048
     Dates: start: 20081201
  3. REVLIMID [Suspect]
     Route: 048
     Dates: start: 20090501, end: 20090601
  4. REVLIMID [Suspect]
     Route: 048
     Dates: start: 20100301

REACTIONS (1)
  - DEATH [None]
